FAERS Safety Report 13960733 (Version 1)
Quarter: 2017Q3

REPORT INFORMATION
  Report Type: Spontaneous
  Country: GB (occurrence: GB)
  Receive Date: 20170912
  Receipt Date: 20170912
  Transmission Date: 20171128
  Serious: Yes (Other)
  Sender: FDA-Public Use
  Company Number: GB-BAYER-2017-032238

PATIENT
  Age: 58 Year
  Sex: Female

DRUGS (2)
  1. BETAFERON [Suspect]
     Active Substance: INTERFERON BETA-1B
     Dosage: 250 ?G, UNK
     Dates: start: 2000
  2. BETAFERON [Suspect]
     Active Substance: INTERFERON BETA-1B
     Dosage: 250 ?G, QOD
     Route: 058
     Dates: start: 20140715

REACTIONS (3)
  - Sciatica [Recovered/Resolved]
  - Drug dose omission [None]
  - Multiple sclerosis relapse [None]

NARRATIVE: CASE EVENT DATE: 201702
